FAERS Safety Report 7624159-8 (Version None)
Quarter: 2011Q3

REPORT INFORMATION
  Report Type: 
  Country: None (occurrence: None)
  Receive Date: 20110720
  Receipt Date: 20110720
  Transmission Date: 20111222
  Serious: Yes (Other)
  Sender: FDA-Public Use
  Company Number: None

PATIENT
  Age: 46 Year
  Sex: Female
  Weight: 84 kg

DRUGS (2)
  1. ZIPRASIDONE MESYLATE [Suspect]
     Indication: SCHIZOPHRENIA
     Dosage: 20MG
     Route: 030
  2. ZIPRASIDONE MESYLATE [Suspect]
     Indication: AGITATION
     Dosage: 20MG
     Route: 030

REACTIONS (1)
  - NODAL ARRHYTHMIA [None]
